FAERS Safety Report 14711567 (Version 1)
Quarter: 2018Q2

REPORT INFORMATION
  Report Type: Report from Study
  Country: CA (occurrence: CA)
  Receive Date: 20180403
  Receipt Date: 20180403
  Transmission Date: 20180711
  Serious: Yes (Other)
  Sender: FDA-Public Use
  Company Number: CA-TAKEDA-2018TUS008047

PATIENT
  Age: 43 Year
  Sex: Male

DRUGS (2)
  1. VEDOLIZUMAB [Suspect]
     Active Substance: VEDOLIZUMAB
     Indication: CROHN^S DISEASE
     Dosage: 300 MG, UNK
     Route: 042
     Dates: start: 20160511
  2. RIZATRIPTAN. [Concomitant]
     Active Substance: RIZATRIPTAN
     Indication: HEADACHE
     Dosage: 5 MG, UNK
     Route: 060

REACTIONS (2)
  - Joint deposit [Recovered/Resolved]
  - Lipoma [Recovered/Resolved]
